FAERS Safety Report 7352519-1 (Version None)
Quarter: 2011Q1

REPORT INFORMATION
  Report Type: 
  Country: None (occurrence: None)
  Receive Date: 20110315
  Receipt Date: 20110307
  Transmission Date: 20110831
  Serious: Yes (Other)
  Sender: FDA-Public Use
  Company Number: CA-US-EMD SERONO, INC.-230113J09CAN

PATIENT
  Sex: Female

DRUGS (6)
  1. REBIF [Suspect]
     Indication: RELAPSING-REMITTING MULTIPLE SCLEROSIS
     Dates: start: 20090929
  2. REBIF [Suspect]
  3. ACETAMIOPHEN [Concomitant]
     Indication: PREMEDICATION
  4. TYLENOL [Concomitant]
  5. CYPROLEX [Concomitant]
  6. APO-AMYTRIPTILLINE [Concomitant]

REACTIONS (3)
  - THYROID CANCER [None]
  - MYALGIA [None]
  - HEPATIC CYST [None]
